FAERS Safety Report 8512108 (Version 3)
Quarter: 2013Q2

REPORT INFORMATION
  Report Type: Spontaneous
  Country: US (occurrence: US)
  Receive Date: 20120413
  Receipt Date: 20130617
  Transmission Date: 20140414
  Serious: Yes (Hospitalization, Disabling)
  Sender: FDA-Public Use
  Company Number: US-ASTRAZENECA-2011SE41569

PATIENT
  Age: 54 Year
  Sex: Female

DRUGS (24)
  1. NEXIUM [Suspect]
     Indication: GASTROOESOPHAGEAL REFLUX DISEASE
     Dosage: TWO TIMES A DAY
     Route: 048
     Dates: start: 2001
  2. NEXIUM [Suspect]
     Indication: DYSPEPSIA
     Dosage: TWO TIMES A DAY
     Route: 048
     Dates: start: 2001
  3. NEXIUM [Suspect]
     Indication: GASTROOESOPHAGEAL REFLUX DISEASE
     Dosage: TWO TIMES A DAY
     Route: 048
     Dates: start: 2001
  4. NEXIUM [Suspect]
     Indication: GASTROOESOPHAGEAL REFLUX DISEASE
     Dosage: 1 CAPSULE EVERY MORNING BEFORE BREAKFAST
     Route: 048
  5. NEXIUM [Suspect]
     Indication: DYSPEPSIA
     Dosage: 1 CAPSULE EVERY MORNING BEFORE BREAKFAST
     Route: 048
  6. NEXIUM [Suspect]
     Indication: GASTROOESOPHAGEAL REFLUX DISEASE
     Dosage: 1 CAPSULE EVERY MORNING BEFORE BREAKFAST
     Route: 048
  7. TOPROL XL [Concomitant]
     Indication: BLOOD PRESSURE ABNORMAL
     Route: 048
  8. ASPIRIN [Concomitant]
     Indication: ANTICOAGULANT THERAPY
     Route: 048
  9. HYDRODIURIL [Concomitant]
     Indication: BLOOD PRESSURE ABNORMAL
     Route: 048
  10. DETROL LA [Concomitant]
     Indication: HYPERTONIC BLADDER
     Route: 048
  11. DETROL LA [Concomitant]
     Indication: HYPERTONIC BLADDER
     Route: 048
  12. PRILOSEC [Concomitant]
     Indication: GASTROOESOPHAGEAL REFLUX DISEASE
     Dosage: 20 MG, 2 CAPSULES DAILY AS NEEDED
     Route: 048
  13. NAPROSYN [Concomitant]
     Indication: PAIN
     Route: 048
  14. NAPROSYN [Concomitant]
     Indication: INFLAMMATION
     Route: 048
  15. NAPROSYN [Concomitant]
     Indication: ARTHRITIS
     Route: 048
  16. FLEXERIL [Concomitant]
     Indication: MUSCLE RELAXANT THERAPY
     Dosage: 10 MG, 2 TIMES PER DAY PRN
     Route: 048
  17. FLEXERIL [Concomitant]
     Indication: ARTHRITIS
     Dosage: 10 MG, 2 TIMES PER DAY PRN
     Route: 048
  18. NITROSTAT [Concomitant]
     Indication: ANGINA PECTORIS
     Route: 060
  19. IMDUR [Concomitant]
     Indication: ANGINA PECTORIS
     Route: 048
  20. NORVASC [Concomitant]
     Indication: BLOOD CHOLESTEROL ABNORMAL
     Route: 048
  21. NORVASC [Concomitant]
     Indication: HYPERTENSION
     Route: 048
  22. ZOCOR [Concomitant]
     Indication: BLOOD CHOLESTEROL ABNORMAL
     Route: 048
  23. MAGNESIUM [Concomitant]
  24. VITAMIN B-6 [Concomitant]
     Route: 048

REACTIONS (21)
  - Cardiomegaly [Unknown]
  - Injury [Unknown]
  - Spinal osteoarthritis [Unknown]
  - Arthritis [Unknown]
  - Lower limb fracture [Unknown]
  - Muscle strain [Unknown]
  - Hypertension [Unknown]
  - Carpal tunnel syndrome [Unknown]
  - Joint injury [Unknown]
  - Osteoporosis [Unknown]
  - Multiple fractures [Unknown]
  - Abscess [Unknown]
  - Bone disorder [Unknown]
  - Swelling [Unknown]
  - Gait disturbance [Unknown]
  - Arthropathy [Unknown]
  - Muscle spasms [Unknown]
  - Bone pain [Unknown]
  - Angina pectoris [Unknown]
  - Diabetes mellitus [Unknown]
  - Arthralgia [Unknown]
